FAERS Safety Report 24725147 (Version 1)
Quarter: 2024Q4

REPORT INFORMATION
  Report Type: Spontaneous
  Country: US (occurrence: US)
  Receive Date: 20241212
  Receipt Date: 20241212
  Transmission Date: 20250115
  Serious: No
  Sender: SANDOZ
  Company Number: US-SANDOZ-SDZ2024US100601

PATIENT
  Age: 68 Year
  Sex: Female
  Weight: 79.365 kg

DRUGS (1)
  1. RECLAST [Suspect]
     Active Substance: ZOLEDRONIC ACID
     Indication: Osteoporosis
     Dosage: 00.00 IU, ONE SINGLE DOSE
     Route: 042
     Dates: start: 20240923, end: 20240923

REACTIONS (4)
  - Herpes zoster [Recovered/Resolved]
  - Application site reaction [Unknown]
  - Peripheral swelling [Unknown]
  - Urticaria [Unknown]

NARRATIVE: CASE EVENT DATE: 20241030
